FAERS Safety Report 21963932 (Version 2)
Quarter: 2023Q1

REPORT INFORMATION
  Report Type: Spontaneous
  Country: US (occurrence: US)
  Receive Date: 20230207
  Receipt Date: 20230221
  Transmission Date: 20230417
  Serious: No
  Sender: FDA-Public Use
  Company Number: US-DSJP-DSU-2023-103676

PATIENT
  Sex: Female

DRUGS (2)
  1. ENHERTU [Suspect]
     Active Substance: FAM-TRASTUZUMAB DERUXTECAN-NXKI
     Indication: Product used for unknown indication
     Dosage: UNK
     Route: 065
  2. ENHERTU [Suspect]
     Active Substance: FAM-TRASTUZUMAB DERUXTECAN-NXKI
     Dosage: UNK
     Route: 065
     Dates: start: 20230126

REACTIONS (7)
  - Nausea [Not Recovered/Not Resolved]
  - Fatigue [Recovering/Resolving]
  - Hypersomnia [Not Recovered/Not Resolved]
  - Asthenia [Not Recovered/Not Resolved]
  - Dyspepsia [Unknown]
  - Fatigue [Unknown]
  - Vomiting [Unknown]

NARRATIVE: CASE EVENT DATE: 20230101
